FAERS Safety Report 4411872-9 (Version None)
Quarter: 2004Q3

REPORT INFORMATION
  Report Type: 
  Country: None (occurrence: None)
  Receive Date: 20040730
  Receipt Date: 20030701
  Transmission Date: 20050211
  Serious: No
  Sender: FDA-Public Use
  Company Number: TAP2003Q01344

PATIENT
  Age: 72 Year
  Sex: Male

DRUGS (5)
  1. ZANTAC [Suspect]
     Dosage: .05MG TWICE PER DAY
     Route: 048
  2. PREVACID [Suspect]
     Dosage: 30MG PER DAY
     Route: 048
     Dates: start: 20020901, end: 20030401
  3. CARAFATE [Concomitant]
     Route: 048
  4. QUESTRAN [Concomitant]
     Route: 048
     Dates: start: 20030522
  5. XANAX [Concomitant]
     Indication: ANXIETY
     Route: 048

REACTIONS (1)
  - RASH PRURITIC [None]
